FAERS Safety Report 7034478-4 (Version None)
Quarter: 2010Q4

REPORT INFORMATION
  Report Type: 
  Country: None (occurrence: None)
  Receive Date: 20101008
  Receipt Date: 20101005
  Transmission Date: 20110411
  Serious: Yes (Death)
  Sender: FDA-Public Use
  Company Number: PHHY2010CA60448

PATIENT
  Sex: Female

DRUGS (3)
  1. SANDOSTATIN [Suspect]
     Indication: OVARIAN NEOPLASM
     Dosage: 50 UG, TID
     Route: 058
     Dates: start: 20100904
  2. SANDOSTATIN LAR [Suspect]
     Indication: OVARIAN NEOPLASM
     Dosage: 20 MG, QMO
     Route: 030
     Dates: start: 20100904
  3. SANDOSTATIN LAR [Suspect]
     Dosage: 20 MG ONCE A MONTH
     Route: 030
     Dates: start: 20100909, end: 20100909

REACTIONS (2)
  - BLOOD PRESSURE SYSTOLIC INCREASED [None]
  - DEATH [None]
